FAERS Safety Report 7176737-0 (Version None)
Quarter: 2010Q4

REPORT INFORMATION
  Report Type: 
  Country: None (occurrence: None)
  Receive Date: 20101215
  Receipt Date: 20101215
  Transmission Date: 20110411
  Serious: Yes (Other)
  Sender: FDA-Public Use
  Company Number: None

PATIENT
  Age: 35 Year
  Sex: Female
  Weight: 77.1115 kg

DRUGS (2)
  1. ABILIFY [Suspect]
     Indication: ANXIETY
     Dates: start: 20101209, end: 20101210
  2. ABILIFY [Suspect]
     Indication: DEPRESSION
     Dates: start: 20101209, end: 20101210

REACTIONS (2)
  - DIZZINESS [None]
  - PRESYNCOPE [None]
